FAERS Safety Report 4565395-7 (Version None)
Quarter: 2005Q1

REPORT INFORMATION
  Report Type: 
  Country: None (occurrence: None)
  Receive Date: 20050131
  Receipt Date: 20041214
  Transmission Date: 20050727
  Serious: Yes (Life-Threatening, Hospitalization, Disabling)
  Sender: FDA-Public Use
  Company Number: US-MERCK-0412USA01821

PATIENT
  Age: 88 Year
  Sex: Female

DRUGS (5)
  1. VIOXX [Suspect]
     Indication: BACK PAIN
     Route: 048
     Dates: start: 20020226, end: 20020301
  2. VIOXX [Suspect]
     Indication: MYALGIA
     Route: 048
     Dates: start: 20020226, end: 20020301
  3. COUMADIN [Concomitant]
     Route: 065
  4. COZAAR [Concomitant]
     Route: 065
  5. [THERAPY UNSPECIFIED] [Concomitant]
     Route: 065

REACTIONS (5)
  - ABDOMINAL PAIN LOWER [None]
  - AMNESIA [None]
  - BOWEL MOVEMENT IRREGULARITY [None]
  - MYOCARDIAL INFARCTION [None]
  - STOMACH DISCOMFORT [None]
